FAERS Safety Report 9097582 (Version 2)
Quarter: 2013Q1

REPORT INFORMATION
  Report Type: Report from Study
  Country: IT (occurrence: IT)
  Receive Date: 20130212
  Receipt Date: 20130215
  Transmission Date: 20140127
  Serious: Yes (Life-Threatening, Hospitalization)
  Sender: FDA-Public Use
  Company Number: PHHY2009IT36924

PATIENT
  Age: 69 Year
  Sex: Male
  Weight: 78 kg

DRUGS (9)
  1. CERTICAN [Suspect]
     Dosage: 1.75 MG/DAY
     Route: 048
     Dates: start: 20060831
  2. CERTICAN [Suspect]
     Dosage: 1.75 MG, UNK
     Route: 048
     Dates: start: 20080123, end: 20090818
  3. CERTICAN [Suspect]
     Dosage: 1 MG, BID
     Route: 048
     Dates: start: 20090818, end: 20110208
  4. TENORMIN [Concomitant]
     Indication: HYPERTENSION
     Dosage: 50 MG, UNK
  5. OMNIC [Concomitant]
     Indication: BENIGN PROSTATIC HYPERPLASIA
     Dosage: 0.4 MG, UNK
  6. TAREG [Concomitant]
     Indication: HYPERTENSION
     Dosage: 40 MG, UNK
  7. SANDIMMUN NEORAL [Concomitant]
     Dosage: 50 MG, BID
     Dates: start: 20081013, end: 20090818
  8. SANDIMMUN NEORAL [Concomitant]
     Dosage: 75 MG, UNK
     Dates: start: 20090818, end: 20091019
  9. ASA [Concomitant]
     Dosage: 100 MG, UNK
     Dates: start: 20050613

REACTIONS (6)
  - Subarachnoid haemorrhage [Recovered/Resolved]
  - Loss of consciousness [Recovered/Resolved]
  - Electroencephalogram abnormal [Recovered/Resolved]
  - Syncope [Recovered/Resolved]
  - Head injury [Recovered/Resolved]
  - Deep vein thrombosis [Recovered/Resolved]
